FAERS Safety Report 7727132-4 (Version None)
Quarter: 2011Q3

REPORT INFORMATION
  Report Type: 
  Country: None (occurrence: None)
  Receive Date: 20110902
  Receipt Date: 20110825
  Transmission Date: 20111222
  Serious: Yes (Hospitalization)
  Sender: FDA-Public Use
  Company Number: US-JNJFOC-20110105025

PATIENT
  Sex: Female
  Weight: 66 kg

DRUGS (7)
  1. MINOCYCLINE HCL [Concomitant]
     Indication: ACNE
     Dates: start: 20100101
  2. PALIPERIDONE [Suspect]
     Route: 030
     Dates: start: 20101216, end: 20101216
  3. LITHOBID [Concomitant]
     Indication: DRUG THERAPY
     Dates: start: 20100101
  4. PALIPERIDONE [Suspect]
     Route: 030
     Dates: start: 20101210, end: 20101210
  5. PALIPERIDONE [Suspect]
     Indication: SCHIZOAFFECTIVE DISORDER
     Route: 030
     Dates: start: 20110114
  6. CALCIUM CARBONATE [Concomitant]
     Indication: PROPHYLAXIS
     Dates: start: 20100101
  7. ZOCOR [Concomitant]
     Indication: BLOOD CHOLESTEROL
     Dates: start: 20100101

REACTIONS (2)
  - SUICIDAL IDEATION [None]
  - RESTLESSNESS [None]
